FAERS Safety Report 22139700 (Version 1)
Quarter: 2023Q1

REPORT INFORMATION
  Report Type: Spontaneous
  Country: US (occurrence: None)
  Receive Date: 20230327
  Receipt Date: 20230327
  Transmission Date: 20230417
  Serious: No
  Sender: FDA-Public Use
  Company Number: 2023A054499

PATIENT
  Age: 52 Year
  Sex: Female

DRUGS (1)
  1. SAPHNELO [Suspect]
     Active Substance: ANIFROLUMAB-FNIA
     Indication: Systemic lupus erythematosus
     Route: 042

REACTIONS (5)
  - Vomiting [Unknown]
  - Vein disorder [Unknown]
  - Weight increased [Unknown]
  - Illness [Unknown]
  - Product use issue [Unknown]

NARRATIVE: CASE EVENT DATE: 20230302
